FAERS Safety Report 9796102 (Version 2)
Quarter: 2014Q1

REPORT INFORMATION
  Report Type: Report from Study
  Country: CA (occurrence: CA)
  Receive Date: 20140103
  Receipt Date: 20140117
  Transmission Date: 20141002
  Serious: Yes (Other)
  Sender: FDA-Public Use
  Company Number: CA-JNJFOC-20131217430

PATIENT
  Age: 50 Year
  Sex: Male
  Weight: 83 kg

DRUGS (5)
  1. REMICADE [Suspect]
     Indication: CROHN^S DISEASE
     Route: 042
     Dates: start: 20131227
  2. REMICADE [Suspect]
     Indication: CROHN^S DISEASE
     Route: 042
     Dates: start: 2009
  3. IMURAN [Suspect]
     Indication: PRODUCT USED FOR UNKNOWN INDICATION
     Route: 065
     Dates: end: 201312
  4. MS-CONTIN [Concomitant]
     Indication: CROHN^S DISEASE
     Dosage: AS NECESSARY
     Route: 065
  5. PERCOCET [Concomitant]
     Indication: BACK PAIN
     Dosage: AS NECESSARY; DOSE: PER ^OS^
     Route: 065

REACTIONS (1)
  - Tonsil cancer [Not Recovered/Not Resolved]
